FAERS Safety Report 15836905 (Version 2)
Quarter: 2019Q1

REPORT INFORMATION
  Report Type: Spontaneous
  Country: BG (occurrence: BG)
  Receive Date: 20190117
  Receipt Date: 20190128
  Transmission Date: 20190417
  Serious: Yes (Hospitalization, Other)
  Sender: FDA-Public Use
  Company Number: BG-ASTELLAS-2019US001456

PATIENT
  Age: 29 Year
  Sex: Male

DRUGS (4)
  1. PREDNISOLONE. [Concomitant]
     Active Substance: PREDNISOLONE
     Indication: TRANSPLANT REJECTION
     Dosage: 50 MG, UNKNOWN FREQ. (RELATIVELY HIGH DOSES)
     Route: 048
     Dates: start: 20180120, end: 20181006
  2. METHYLPREDNISOLONE. [Concomitant]
     Active Substance: METHYLPREDNISOLONE
     Dosage: 250-80 MG, UNKNOWN FREQ. (INTERMITTENTLY)
     Route: 042
     Dates: start: 20180201
  3. PROGRAF [Suspect]
     Active Substance: TACROLIMUS\TACROLIMUS ANHYDROUS
     Indication: TRANSPLANT REJECTION
     Dosage: 6+6 MG-1+1MG, UNKNOWN FREQ. (RELATIVELY HIGH DOSES)
     Route: 048
     Dates: start: 20170826
  4. CELLCEPT [Concomitant]
     Active Substance: MYCOPHENOLATE MOFETIL\MYCOPHENOLATE MOFETIL HYDROCHLORIDE
     Indication: TRANSPLANT REJECTION
     Dosage: 500+500 MG-1000+1000 MG, UNKNOWN FREQ. (RELATIVELY HIGH DOSES)
     Route: 048
     Dates: start: 20171122

REACTIONS (7)
  - Hepatosplenomegaly [Unknown]
  - Bronchopulmonary aspergillosis [Recovering/Resolving]
  - Alopecia [Unknown]
  - Anaemia [Unknown]
  - Burkholderia cepacia complex infection [Unknown]
  - Pancytopenia [Unknown]
  - Bile duct stenosis [Unknown]
